FAERS Safety Report 6403418-0 (Version None)
Quarter: 2009Q4

REPORT INFORMATION
  Report Type: 
  Country: None (occurrence: None)
  Receive Date: 20091016
  Receipt Date: 20091014
  Transmission Date: 20100525
  Serious: Yes (Hospitalization, Other)
  Sender: FDA-Public Use
  Company Number: IT-BRISTOL-MYERS SQUIBB COMPANY-14817860

PATIENT
  Age: 85 Year
  Sex: Female

DRUGS (3)
  1. COUMADIN [Suspect]
     Indication: ATRIAL FIBRILLATION
     Dosage: INTERRUPTED ON 03JUL09.
     Route: 048
     Dates: start: 20090427
  2. DILTIAZEM [Concomitant]
     Dosage: 60 MG MODIFIED RELEASE TABS
     Route: 048
     Dates: start: 20090427, end: 20090703
  3. LANSOX [Concomitant]
     Dosage: 15 MG ODT
     Route: 048
     Dates: start: 20090427, end: 20090703

REACTIONS (4)
  - ANAEMIA [None]
  - CONFUSIONAL STATE [None]
  - FALL [None]
  - HAEMATOMA [None]
